FAERS Safety Report 5678827-8 (Version None)
Quarter: 2008Q1

REPORT INFORMATION
  Report Type: 
  Country: None (occurrence: None)
  Receive Date: 20080321
  Receipt Date: 20080306
  Transmission Date: 20080703
  Serious: Yes (Death)
  Sender: FDA-Public Use
  Company Number: 025280

PATIENT
  Age: 77 Year

DRUGS (2)
  1. METFORMIN HYDROCHLORIDE [Suspect]
     Dosage: ORAL
     Route: 048
  2. GLYBURIDE [Suspect]
     Dosage: ORAL
     Route: 048

REACTIONS (2)
  - COMPLETED SUICIDE [None]
  - DRUG TOXICITY [None]
